FAERS Safety Report 13268187 (Version 2)
Quarter: 2017Q2

REPORT INFORMATION
  Report Type: Spontaneous
  Country: US (occurrence: US)
  Receive Date: 20170224
  Receipt Date: 20170518
  Transmission Date: 20170830
  Serious: No
  Sender: FDA-Public Use
  Company Number: US-TEVA-737180ACC

PATIENT
  Sex: Female

DRUGS (5)
  1. MISOPROSTOL. [Concomitant]
     Active Substance: MISOPROSTOL
  2. NORCO [Concomitant]
     Active Substance: ACETAMINOPHEN\HYDROCODONE BITARTRATE
     Dosage: 5/325 MG
  3. ZOFRAN [Concomitant]
     Active Substance: ONDANSETRON HYDROCHLORIDE
  4. PARAGARD T 380A [Suspect]
     Active Substance: COPPER
     Indication: CONTRACEPTION
     Route: 065
  5. XANAX [Concomitant]
     Active Substance: ALPRAZOLAM

REACTIONS (1)
  - Procedural pain [Unknown]
